FAERS Safety Report 6528490-9 (Version None)
Quarter: 2010Q1

REPORT INFORMATION
  Report Type: 
  Country: None (occurrence: None)
  Receive Date: 20100106
  Receipt Date: 20091228
  Transmission Date: 20100710
  Serious: Yes (Other)
  Sender: FDA-Public Use
  Company Number: US-PFIZER INC-2009316054

PATIENT
  Sex: Female

DRUGS (4)
  1. DETROL LA [Suspect]
     Indication: BLADDER SPASM
     Route: 048
  2. LEVOTHYROXINE SODIUM [Concomitant]
     Indication: THYROID DISORDER
     Dosage: UNK
  3. FUROSEMIDE [Concomitant]
     Dosage: UNK
  4. TRAMADOL HYDROCHLORIDE [Concomitant]
     Dosage: UNK

REACTIONS (4)
  - ABSCESS [None]
  - MEDICAL DEVICE COMPLICATION [None]
  - ORAL SURGERY [None]
  - PRODUCT FORMULATION ISSUE [None]
